FAERS Safety Report 10269733 (Version 3)
Quarter: 2014Q3

REPORT INFORMATION
  Report Type: Spontaneous
  Country: US (occurrence: None)
  Receive Date: 20140625
  Receipt Date: 20140714
  Transmission Date: 20150326
  Serious: Yes (Other)
  Sender: FDA-Public Use
  Company Number: 2014060064

PATIENT
  Age: 63 Year
  Sex: Male

DRUGS (8)
  1. SPIRONOLACTONE (SPIRONOLACTONE) [Concomitant]
     Active Substance: SPIRONOLACTONE
  2. DEXAMETHASONE. [Concomitant]
     Active Substance: DEXAMETHASONE
  3. CARBOCISTEINE [Concomitant]
     Active Substance: CARBOCYSTEINE
  4. TRANEXAMIC ACID (TRANEXAMIC ACID) [Concomitant]
     Active Substance: TRANEXAMIC ACID
  5. LUPRAC (TORASEMIDE) [Suspect]
     Active Substance: TORSEMIDE
     Indication: CARDIAC DISORDER
     Dosage: 4 MG (4MG, 1 IN 1 D), ORAL
     Route: 048
     Dates: start: 20130412, end: 20130524
  6. FLUTICASONE PROPIONATE (FLUTICASONE PROPIONATE) (FLUTICASONE PROPIONATE) [Concomitant]
     Active Substance: FLUTICASONE PROPIONATE
  7. TANATRIL (IMIDAPRIL HYDROCHLORIDE) [Suspect]
     Active Substance: IMIDAPRIL HYDROCHLORIDE
     Indication: CARDIAC DISORDER
     Dosage: (5 MG, EVERY DAY), ORAL
     Route: 048
     Dates: start: 20130412
  8. ARTIST 10 MG (CARVEDILOL) [Concomitant]

REACTIONS (6)
  - Speech disorder [None]
  - Dyspnoea [None]
  - Oropharyngeal pain [None]
  - Laryngeal oedema [None]
  - Sensory disturbance [None]
  - Pharyngeal oedema [None]

NARRATIVE: CASE EVENT DATE: 20140512
